FAERS Safety Report 5824293-9 (Version None)
Quarter: 2008Q3

REPORT INFORMATION
  Report Type: 
  Country: None (occurrence: None)
  Receive Date: 20080728
  Receipt Date: 20080717
  Transmission Date: 20090109
  Serious: Yes (Hospitalization, Disabling, Other)
  Sender: FDA-Public Use
  Company Number: US-ROCHE-381292

PATIENT
  Sex: Female
  Weight: 76.7 kg

DRUGS (3)
  1. PEGASYS [Suspect]
     Route: 058
     Dates: start: 20040809, end: 20041005
  2. COPEGUS [Suspect]
     Route: 048
     Dates: start: 20040809, end: 20041005
  3. EFFEXOR [Concomitant]
     Indication: DEPRESSION
     Dosage: DOSE INCREASED TO 220MG DAILY IN RESPONSE TO WORSENING DEPRESSION.
     Route: 048
     Dates: end: 20040801

REACTIONS (16)
  - ANAEMIA [None]
  - ARTHRALGIA [None]
  - ARTHRITIS [None]
  - DEPRESSION [None]
  - FATIGUE [None]
  - FIBROMYALGIA [None]
  - HEADACHE [None]
  - INFLUENZA LIKE ILLNESS [None]
  - NAUSEA [None]
  - NEUTROPENIA [None]
  - PARKINSON'S DISEASE [None]
  - PLATELET COUNT DECREASED [None]
  - PSYCHOTIC DISORDER [None]
  - RASH [None]
  - SUICIDAL IDEATION [None]
  - WEIGHT DECREASED [None]
